FAERS Safety Report 18415480 (Version 1)
Quarter: 2020Q4

REPORT INFORMATION
  Report Type: Spontaneous
  Country: NL (occurrence: NL)
  Receive Date: 20201022
  Receipt Date: 20201022
  Transmission Date: 20210114
  Serious: Yes (Life-Threatening, Other)
  Sender: FDA-Public Use
  Company Number: NL-TEVA-2020-NL-1839859

PATIENT
  Age: 69 Year
  Sex: Female
  Weight: 73 kg

DRUGS (1)
  1. OMEPRAZOL CAPSULE MSR 20MG / BRAND NAME NOT SPECIFIED [Suspect]
     Active Substance: OMEPRAZOLE
     Indication: REGURGITATION
     Dosage: 1 DOSAGE FORMS DAILY;
     Route: 065
     Dates: start: 200801, end: 20200921

REACTIONS (1)
  - Hypomagnesaemia [Recovered/Resolved]

NARRATIVE: CASE EVENT DATE: 20200501
